FAERS Safety Report 11558519 (Version 19)
Quarter: 2016Q3

REPORT INFORMATION
  Report Type: Report from Study
  Country: CA (occurrence: CA)
  Receive Date: 20150928
  Receipt Date: 20160926
  Transmission Date: 20161109
  Serious: Yes (Hospitalization, Other)
  Sender: FDA-Public Use
  Company Number: CA-ROCHE-1567489

PATIENT
  Age: 27 Year
  Sex: Female

DRUGS (11)
  1. ACTEMRA [Suspect]
     Active Substance: TOCILIZUMAB
     Indication: VASCULITIS
     Route: 042
     Dates: start: 20160708
  2. OMEGA 3 [Concomitant]
     Active Substance: OMEGA-3 FATTY ACIDS
  3. ACTEMRA [Suspect]
     Active Substance: TOCILIZUMAB
     Indication: BEHCET^S SYNDROME
     Route: 042
     Dates: start: 20150225, end: 20160419
  4. ACTEMRA [Suspect]
     Active Substance: TOCILIZUMAB
     Indication: BEHCET^S SYNDROME
     Route: 058
     Dates: start: 20160531, end: 201606
  5. AZATHIOPRINE. [Suspect]
     Active Substance: AZATHIOPRINE
     Indication: PRODUCT USED FOR UNKNOWN INDICATION
     Route: 065
     Dates: start: 201605
  6. ASPIRIN. [Concomitant]
     Active Substance: ASPIRIN
     Route: 065
  7. ASPIRIN. [Concomitant]
     Active Substance: ASPIRIN
     Dosage: DAILY
     Route: 065
  8. HYDROMORPHONE [Concomitant]
     Active Substance: HYDROMORPHONE
  9. PREDNISONE. [Concomitant]
     Active Substance: PREDNISONE
  10. COLCHICINE. [Concomitant]
     Active Substance: COLCHICINE
  11. TRAZODONE [Concomitant]
     Active Substance: TRAZODONE HYDROCHLORIDE

REACTIONS (31)
  - Back pain [Unknown]
  - Therapy partial responder [Unknown]
  - Pruritus [Unknown]
  - Drug ineffective [Unknown]
  - Arthralgia [Not Recovered/Not Resolved]
  - Nausea [Unknown]
  - Back pain [Not Recovered/Not Resolved]
  - Neck pain [Unknown]
  - Pruritus [Recovered/Resolved]
  - Infected skin ulcer [Not Recovered/Not Resolved]
  - Poor venous access [Unknown]
  - Off label use [Unknown]
  - Skin ulcer [Not Recovered/Not Resolved]
  - Behcet^s syndrome [Not Recovered/Not Resolved]
  - Erythema [Recovered/Resolved]
  - Abdominal pain [Recovering/Resolving]
  - Rectal haemorrhage [Recovering/Resolving]
  - Vasculitis [Unknown]
  - Mouth ulceration [Not Recovered/Not Resolved]
  - Crohn^s disease [Unknown]
  - Dehydration [Unknown]
  - Flank pain [Not Recovered/Not Resolved]
  - Therapeutic response decreased [Unknown]
  - Fatigue [Not Recovered/Not Resolved]
  - Angiopathy [Unknown]
  - Swelling [Not Recovered/Not Resolved]
  - Scleroderma [Not Recovered/Not Resolved]
  - Burning sensation [Unknown]
  - Pain [Not Recovered/Not Resolved]
  - Skin burning sensation [Unknown]
  - Rectal discharge [Recovering/Resolving]

NARRATIVE: CASE EVENT DATE: 20150519
